FAERS Safety Report 20796451 (Version 1)
Quarter: 2022Q2

REPORT INFORMATION
  Report Type: Spontaneous
  Country: US (occurrence: US)
  Receive Date: 20220506
  Receipt Date: 20220506
  Transmission Date: 20220720
  Serious: No
  Sender: FDA-Public Use
  Company Number: US-TEVA-2022-US-2027686

PATIENT
  Age: 52 Year
  Sex: Female

DRUGS (27)
  1. AUSTEDO [Suspect]
     Active Substance: DEUTETRABENAZINE
     Indication: Tardive dyskinesia
     Route: 065
     Dates: start: 20220330
  2. DULOXETINE [Concomitant]
     Active Substance: DULOXETINE
  3. GLIMEPIRIDE [Concomitant]
     Active Substance: GLIMEPIRIDE
  4. GABAPENTIN [Concomitant]
     Active Substance: GABAPENTIN
  5. BUTRANS [Concomitant]
     Active Substance: BUPRENORPHINE
  6. HYDROCODONE [Concomitant]
     Active Substance: HYDROCODONE
  7. ASPIRIN [Concomitant]
     Active Substance: ASPIRIN
  8. DIVALPROEX SODIUM [Concomitant]
     Active Substance: DIVALPROEX SODIUM
  9. TRADJENTA [Concomitant]
     Active Substance: LINAGLIPTIN
  10. LANTUS [Concomitant]
     Active Substance: INSULIN GLARGINE
  11. BUSPIRONE [Concomitant]
     Active Substance: BUSPIRONE HYDROCHLORIDE
  12. VERAPAMIL [Concomitant]
     Active Substance: VERAPAMIL HYDROCHLORIDE
  13. ROSUVASTATIN [Concomitant]
     Active Substance: ROSUVASTATIN
  14. CHLORZOXAZONE [Concomitant]
     Active Substance: CHLORZOXAZONE
  15. SODIUM CHLORIDE [Concomitant]
     Active Substance: SODIUM CHLORIDE
  16. LEVOTHYROXINE [Concomitant]
     Active Substance: LEVOTHYROXINE
  17. METFORMIN [Concomitant]
     Active Substance: METFORMIN HYDROCHLORIDE
  18. ARIPIPRAZOLE [Concomitant]
     Active Substance: ARIPIPRAZOLE
  19. HYDROXYZINE [Concomitant]
     Active Substance: HYDROXYZINE HYDROCHLORIDE
  20. FUROSEMIDE [Concomitant]
     Active Substance: FUROSEMIDE
  21. EZETIMIBE [Concomitant]
     Active Substance: EZETIMIBE
  22. LISINOPRIL [Concomitant]
     Active Substance: LISINOPRIL
  23. FLONASE [Concomitant]
     Active Substance: FLUTICASONE PROPIONATE
  24. AZELASTINE [Concomitant]
     Active Substance: AZELASTINE
  25. ZINC [Concomitant]
     Active Substance: ZINC
  26. ESTRADIOL [Concomitant]
     Active Substance: ESTRADIOL
  27. MELATONIN [Concomitant]
     Active Substance: MELATONIN

REACTIONS (1)
  - Tachycardia [Unknown]

NARRATIVE: CASE EVENT DATE: 20220101
